FAERS Safety Report 5525768-2 (Version None)
Quarter: 2007Q4

REPORT INFORMATION
  Report Type: 
  Country: None (occurrence: None)
  Receive Date: 20071126
  Receipt Date: 20071108
  Transmission Date: 20080405
  Serious: Yes (Other)
  Sender: FDA-Public Use
  Company Number: JP-ASTRAZENECA-2007AP07421

PATIENT
  Age: 29 Year
  Sex: Female

DRUGS (12)
  1. SEROQUEL [Suspect]
     Indication: SCHIZOPHRENIA
     Route: 048
     Dates: end: 20070912
  2. SEROQUEL [Suspect]
     Route: 048
     Dates: start: 20070913, end: 20071023
  3. SEROQUEL [Suspect]
     Route: 048
     Dates: start: 20071024
  4. RIVOTRIL [Concomitant]
     Route: 048
     Dates: end: 20071025
  5. RIVOTRIL [Concomitant]
     Route: 048
     Dates: start: 20071026
  6. DEPAS [Concomitant]
     Route: 048
  7. NITRAZEPAM [Concomitant]
     Route: 048
  8. PROMETHAZINE [Concomitant]
     Route: 048
  9. BIPERIDEN HYDROCHLORIDE TAB [Concomitant]
     Route: 048
     Dates: end: 20071017
  10. BIPERIDEN HYDROCHLORIDE TAB [Concomitant]
     Route: 048
     Dates: start: 20071018
  11. GLYSENNID [Concomitant]
     Dosage: 4 DOSAGE FORM
     Route: 048
  12. MAGNESIUM OXIDE [Concomitant]
     Route: 048

REACTIONS (1)
  - LOSS OF CONSCIOUSNESS [None]
